FAERS Safety Report 15856253 (Version 1)
Quarter: 2019Q1

REPORT INFORMATION
  Report Type: Spontaneous
  Country: DE (occurrence: DE)
  Receive Date: 20190123
  Receipt Date: 20190123
  Transmission Date: 20190417
  Serious: Yes (Other)
  Sender: FDA-Public Use
  Company Number: DE-DEXPHARM-20190015

PATIENT
  Sex: Female

DRUGS (1)
  1. PERIOCHIP [Suspect]
     Active Substance: CHLORHEXIDINE GLUCONATE
     Indication: PERIODONTITIS
     Route: 004
     Dates: start: 20181206, end: 20181206

REACTIONS (4)
  - Sinusitis [Not Recovered/Not Resolved]
  - Product expiration date issue [Not Recovered/Not Resolved]
  - Headache [Not Recovered/Not Resolved]
  - Deafness [Not Recovered/Not Resolved]

NARRATIVE: CASE EVENT DATE: 20181206
